FAERS Safety Report 4615841-5 (Version None)
Quarter: 2005Q1

REPORT INFORMATION
  Report Type: 
  Country: None (occurrence: None)
  Receive Date: 20050321
  Receipt Date: 20050303
  Transmission Date: 20050727
  Serious: Yes (Other)
  Sender: FDA-Public Use
  Company Number: TRP_0076_2005

PATIENT
  Sex: Male

DRUGS (2)
  1. RIBASPHERE [Suspect]
     Indication: HEPATITIS C
     Dates: start: 20041201, end: 20050216
  2. PEG-INTRON [Suspect]
     Indication: HEPATITIS C
     Dates: start: 20041201, end: 20050216

REACTIONS (4)
  - EYE PRURITUS [None]
  - EYELID PTOSIS [None]
  - HEADACHE [None]
  - RETINAL HAEMORRHAGE [None]
